FAERS Safety Report 6531195-1 (Version None)
Quarter: 2010Q1

REPORT INFORMATION
  Report Type: 
  Country: None (occurrence: None)
  Receive Date: 20100108
  Receipt Date: 20091226
  Transmission Date: 20100710
  Serious: Yes (Hospitalization)
  Sender: FDA-Public Use
  Company Number: PHHY2009DZ60193

PATIENT
  Weight: 53 kg

DRUGS (1)
  1. ICL670A ICL+ [Suspect]
     Dosage: UNK,UNK

REACTIONS (3)
  - CONCOMITANT DISEASE AGGRAVATED [None]
  - CONVULSION [None]
  - HYPOCALCAEMIA [None]
